FAERS Safety Report 22611635 (Version 1)
Quarter: 2023Q2

REPORT INFORMATION
  Report Type: Spontaneous
  Country: None (occurrence: US)
  Receive Date: 20230616
  Receipt Date: 20230616
  Transmission Date: 20230722
  Serious: No
  Sender: FDA-Public Use
  Company Number: US-Breckenridge Pharmaceutical, Inc.-2142792

PATIENT
  Sex: Female

DRUGS (5)
  1. DULOXETINE [Suspect]
     Active Substance: DULOXETINE
     Route: 048
  2. LYRICA [Concomitant]
     Active Substance: PREGABALIN
  3. FAMOTIDINE [Concomitant]
     Active Substance: FAMOTIDINE
  4. TRAMADOL [Concomitant]
     Active Substance: TRAMADOL
  5. BACLOFEN [Concomitant]
     Active Substance: BACLOFEN

REACTIONS (2)
  - Tinnitus [Not Recovered/Not Resolved]
  - Tinnitus [Not Recovered/Not Resolved]
